FAERS Safety Report 21867992 (Version 2)
Quarter: 2023Q1

REPORT INFORMATION
  Report Type: Spontaneous
  Country: US (occurrence: US)
  Receive Date: 20230116
  Receipt Date: 20230120
  Transmission Date: 20230418
  Serious: Yes (Hospitalization, Other)
  Sender: FDA-Public Use
  Company Number: US-ALLERGAN-2300692US

PATIENT
  Sex: Female
  Weight: 74.842 kg

DRUGS (1)
  1. CRINONE [Suspect]
     Active Substance: PROGESTERONE
     Indication: Hormone therapy
     Route: 067
     Dates: start: 2009, end: 2009

REACTIONS (10)
  - Stillbirth [Unknown]
  - Gallbladder rupture [Recovered/Resolved]
  - Hiatus hernia [Not Recovered/Not Resolved]
  - Pulmonary hypertension [Unknown]
  - Vomiting [Recovered/Resolved]
  - Pregnancy [Unknown]
  - Malaise [Recovered/Resolved]
  - Premature labour [Unknown]
  - Abdominal pain [Recovered/Resolved]
  - Disease recurrence [Recovered/Resolved]

NARRATIVE: CASE EVENT DATE: 20090101
